FAERS Safety Report 10777235 (Version 1)
Quarter: 2015Q1

REPORT INFORMATION
  Report Type: Other
  Country: US (occurrence: US)
  Receive Date: 20150209
  Receipt Date: 20150209
  Transmission Date: 20150721
  Serious: Yes (Death)
  Sender: FDA-Public Use
  Company Number: US-FRI-1000074380

PATIENT
  Age: 44 Year
  Sex: Female

DRUGS (3)
  1. DILTIAZEM [Suspect]
     Active Substance: DILTIAZEM
  2. CITALOPRAM [Suspect]
     Active Substance: CITALOPRAM HYDROBROMIDE
  3. CETIRIZINE [Suspect]
     Active Substance: CETIRIZINE HYDROCHLORIDE

REACTIONS (3)
  - Completed suicide [Fatal]
  - Respiratory arrest [None]
  - Cardiac arrest [None]
